FAERS Safety Report 6367731-8 (Version None)
Quarter: 2009Q3

REPORT INFORMATION
  Report Type: 
  Country: None (occurrence: None)
  Receive Date: 20090921
  Receipt Date: 20090910
  Transmission Date: 20100115
  Serious: Yes (Other)
  Sender: FDA-Public Use
  Company Number: PHEH2009US10770

PATIENT
  Sex: Female

DRUGS (1)
  1. HYPOTEARS (NVO) [Suspect]

REACTIONS (3)
  - CATARACT [None]
  - CATARACT OPERATION [None]
  - EYE LASER SURGERY [None]
